FAERS Safety Report 13814676 (Version 2)
Quarter: 2017Q3

REPORT INFORMATION
  Report Type: Spontaneous
  Country: JP (occurrence: JP)
  Receive Date: 20170731
  Receipt Date: 20170810
  Transmission Date: 20171127
  Serious: Yes (Hospitalization)
  Sender: FDA-Public Use
  Company Number: JP-TEVA-2017-JP-002480J

PATIENT
  Age: 74 Year
  Sex: Female

DRUGS (4)
  1. PREDNISOLONE TABLETS 5MG. [Suspect]
     Active Substance: PREDNISOLONE
     Dosage: 10 MILLIGRAM DAILY;
     Route: 065
  2. PREDNISOLONE TABLETS 5MG. [Suspect]
     Active Substance: PREDNISOLONE
     Indication: AUTOIMMUNE HEPATITIS
     Dosage: 30 MILLIGRAM DAILY;
     Route: 065
  3. PREDNISOLONE TABLETS 5MG. [Suspect]
     Active Substance: PREDNISOLONE
     Dosage: 16 MILLIGRAM DAILY;
     Route: 065
  4. PREDNISOLONE TABLETS 5MG. [Suspect]
     Active Substance: PREDNISOLONE
     Dosage: 30 MILLIGRAM DAILY;
     Route: 065

REACTIONS (2)
  - Brain abscess [Recovering/Resolving]
  - Meningitis [Recovering/Resolving]
